FAERS Safety Report 9355741 (Version 2)
Quarter: 2013Q4

REPORT INFORMATION
  Report Type: Report from Study
  Country: US (occurrence: US)
  Receive Date: 20130619
  Receipt Date: 20131008
  Transmission Date: 20140711
  Serious: Yes (Death, Hospitalization)
  Sender: FDA-Public Use
  Company Number: US-PFIZER INC-2013180965

PATIENT
  Age: 70 Year
  Sex: Male
  Weight: 81.1 kg

DRUGS (9)
  1. CARBOPLATIN [Suspect]
     Indication: SQUAMOUS CELL CARCINOMA OF HEAD AND NECK
     Dosage: AUC 5, ON DAY ONE OF CYCLES ONE TO SIX
     Route: 042
     Dates: start: 20121101, end: 20130304
  2. FLUOROURACIL [Suspect]
     Indication: SQUAMOUS CELL CARCINOMA OF HEAD AND NECK
     Dosage: 1000 MG/M2, CYCLIC (ON DAY ONE TO FOUR OF CYCLES ONE TO SIX)
     Route: 042
     Dates: start: 20121101, end: 20130304
  3. BLINDED THERAPY [Suspect]
     Indication: SQUAMOUS CELL CARCINOMA OF HEAD AND NECK
     Dosage: LOADING DOSE ON DAY ONE OF CYCLE ONE ONLY
     Dates: start: 20121101, end: 20121101
  4. BLINDED THERAPY [Suspect]
     Dosage: WEEKLY DOSE
     Dates: start: 20121108, end: 20130528
  5. CARVEDILOL [Concomitant]
     Indication: HYPERTENSION
     Dosage: UNK
     Dates: start: 20120402
  6. CALCIUM [Concomitant]
     Indication: HYPOCALCAEMIA
     Dosage: UNK
     Dates: start: 20120318
  7. COUMADIN [Concomitant]
     Indication: DEEP VEIN THROMBOSIS
     Dosage: UNK
     Dates: start: 20120121
  8. COUMADIN [Concomitant]
     Indication: PULMONARY EMBOLISM
  9. SIMVASTATIN [Concomitant]
     Indication: HYPERCHOLESTEROLAEMIA
     Dosage: UNK
     Dates: start: 20090616

REACTIONS (5)
  - Acute respiratory failure [Fatal]
  - Pneumonia [Fatal]
  - Renal failure acute [Fatal]
  - Hypercalcaemia [Fatal]
  - Dehydration [Not Recovered/Not Resolved]
